FAERS Safety Report 8923961 (Version 1)
Quarter: 2012Q4

REPORT INFORMATION
  Report Type: 
  Country: IT (occurrence: IT)
  Receive Date: 20121127
  Receipt Date: 20121127
  Transmission Date: 20130627
  Serious: Yes (Other)
  Sender: FDA-Public Use
  Company Number: IT-RANBAXY-2012R1-62267

PATIENT
  Sex: Female

DRUGS (1)
  1. AMOXICILLIN [Suspect]
     Indication: PRODUCT USED FOR UNKNOWN INDICATION
     Dosage: UNK
     Route: 065

REACTIONS (5)
  - Asthenia [Not Recovered/Not Resolved]
  - Diarrhoea [Not Recovered/Not Resolved]
  - Hyperpyrexia [Not Recovered/Not Resolved]
  - Pruritus [Not Recovered/Not Resolved]
  - Rash morbilliform [Not Recovered/Not Resolved]
